FAERS Safety Report 5092046-8 (Version None)
Quarter: 2006Q3

REPORT INFORMATION
  Report Type: 
  Country: None (occurrence: None)
  Receive Date: 20060727
  Receipt Date: 20060601
  Transmission Date: 20061208
  Serious: Yes (Other)
  Sender: FDA-Public Use
  Company Number: 2006047430

PATIENT
  Age: 63 Year
  Sex: Female
  Weight: 104.3273 kg

DRUGS (11)
  1. LYRICA [Suspect]
     Indication: COMPLEX REGIONAL PAIN SYNDROME
     Dosage: 150 MG (75 MG,2 IN 1 D)
     Dates: start: 20060207, end: 20060310
  2. CYMBALTA [Concomitant]
  3. DYAZIDE [Concomitant]
  4. ESTRACE [Concomitant]
  5. DIOVAN [Concomitant]
  6. MIRAPEX [Concomitant]
  7. SYNTHROID [Concomitant]
  8. ZOCOR [Concomitant]
  9. DESYREL [Concomitant]
  10. ZOVIRAX [Concomitant]
  11. ASPIRIN [Concomitant]

REACTIONS (8)
  - CARDIAC DISORDER [None]
  - DIASTOLIC DYSFUNCTION [None]
  - DYSPNOEA EXERTIONAL [None]
  - OEDEMA PERIPHERAL [None]
  - ORTHOPNOEA [None]
  - PALPITATIONS [None]
  - TRICUSPID VALVE INCOMPETENCE [None]
  - WEIGHT INCREASED [None]
